FAERS Safety Report 5033178-X (Version None)
Quarter: 2006Q2

REPORT INFORMATION
  Report Type: 
  Country: None (occurrence: None)
  Receive Date: 20060622
  Receipt Date: 20060621
  Transmission Date: 20061013
  Serious: Yes (Death)
  Sender: FDA-Public Use
  Company Number: US-ABBOTT-06P-163-0336462-01

PATIENT
  Sex: Male

DRUGS (14)
  1. RITONAVIR SOFT GELATIN CAPSULES [Suspect]
     Indication: HIV INFECTION
     Route: 048
     Dates: start: 20030505, end: 20030715
  2. TIPRANAVIR [Concomitant]
     Indication: HIV INFECTION
     Route: 048
     Dates: start: 20030505, end: 20030715
  3. ENFUVIRTIDE [Concomitant]
     Indication: HIV INFECTION
     Dates: start: 20030505, end: 20030715
  4. TENOFOVIR [Concomitant]
     Indication: HIV INFECTION
     Dates: start: 20020201, end: 20030715
  5. LAMIVUDINE [Concomitant]
     Indication: HIV INFECTION
     Dates: start: 20020201, end: 20030715
  6. DELAVIRDINE [Concomitant]
     Indication: HIV INFECTION
     Dates: start: 20030505, end: 20030715
  7. DIDANOSINE [Concomitant]
     Indication: HIV INFECTION
     Dates: start: 20030505
  8. AMITRIPTYLINE HYDROCHLORIDE [Concomitant]
     Indication: DEPRESSION
  9. TEMAZEPAM [Concomitant]
     Indication: SLEEP DISORDER
  10. VICODIN [Concomitant]
     Indication: NEUROPATHY PERIPHERAL
  11. BACTRIM [Concomitant]
     Indication: ANTIBIOTIC PROPHYLAXIS
  12. LANSOPRAZOLE [Concomitant]
     Indication: GASTROOESOPHAGEAL REFLUX DISEASE
  13. OXYCODONE HCL [Concomitant]
     Indication: ABDOMINAL PAIN
     Dates: start: 20030627
  14. FLUCONAZOLE [Concomitant]
     Indication: INFECTION PROPHYLAXIS

REACTIONS (1)
  - DEATH [None]
